FAERS Safety Report 15737103 (Version 1)
Quarter: 2018Q4

REPORT INFORMATION
  Report Type: Spontaneous
  Country: US (occurrence: US)
  Receive Date: 20181218
  Receipt Date: 20181218
  Transmission Date: 20190205
  Serious: No
  Sender: FDA-Public Use
  Company Number: US-SA-2018SA344304

PATIENT
  Sex: Female

DRUGS (3)
  1. PRALUENT [Suspect]
     Active Substance: ALIROCUMAB
     Indication: HYPERLIPIDAEMIA
     Dosage: 1 DF, QOW
     Route: 058
  2. LISINOPRIL. [Concomitant]
     Active Substance: LISINOPRIL
  3. REPATHA [Concomitant]
     Active Substance: EVOLOCUMAB

REACTIONS (4)
  - Diarrhoea [Unknown]
  - Dyspepsia [Unknown]
  - Asthenia [Unknown]
  - Gastrooesophageal reflux disease [Unknown]
